FAERS Safety Report 5289555-5 (Version None)
Quarter: 2007Q2

REPORT INFORMATION
  Report Type: 
  Country: None (occurrence: None)
  Receive Date: 20070406
  Receipt Date: 20070329
  Transmission Date: 20071010
  Serious: Yes (Other)
  Sender: FDA-Public Use
  Company Number: JP-ROCHE-372808

PATIENT
  Age: 12 Year
  Sex: Male

DRUGS (4)
  1. TAMIFLU [Suspect]
     Route: 048
     Dates: start: 20040130, end: 20040130
  2. ZITHROMAC [Concomitant]
     Route: 048
     Dates: start: 20040130, end: 20040131
  3. CALONAL [Concomitant]
     Route: 048
     Dates: start: 20040130, end: 20040131
  4. TELGIN G [Concomitant]
     Route: 048
     Dates: start: 20040130, end: 20040131

REACTIONS (6)
  - ABNORMAL BEHAVIOUR [None]
  - BODY TEMPERATURE INCREASED [None]
  - DELIRIUM [None]
  - DEPRESSED LEVEL OF CONSCIOUSNESS [None]
  - HALLUCINATION [None]
  - LOGORRHOEA [None]
